FAERS Safety Report 19905844 (Version 1)
Quarter: 2021Q3

REPORT INFORMATION
  Report Type: Spontaneous
  Country: US (occurrence: US)
  Receive Date: 20210930
  Receipt Date: 20210930
  Transmission Date: 20211014
  Serious: No
  Sender: FDA-Public Use
  Company Number: US-ASTRAZENECA-2021A728378

PATIENT
  Sex: Female

DRUGS (2)
  1. BEVESPI AEROSPHERE [Suspect]
     Active Substance: FORMOTEROL FUMARATE\GLYCOPYRROLATE
     Indication: BRONCHIECTASIS
     Dosage: 2 PUFFS TWICE A DAY
     Route: 055
     Dates: start: 2020
  2. BEVESPI AEROSPHERE [Suspect]
     Active Substance: FORMOTEROL FUMARATE\GLYCOPYRROLATE
     Indication: BRONCHIECTASIS
     Dosage: 2 PUFFS TWICE A DAY
     Route: 055
     Dates: start: 2019

REACTIONS (7)
  - Device delivery system issue [Unknown]
  - Oxygen saturation decreased [Recovering/Resolving]
  - Device use issue [Not Recovered/Not Resolved]
  - Dyspnoea [Not Recovered/Not Resolved]
  - Wrong technique in device usage process [Unknown]
  - Wheezing [Not Recovered/Not Resolved]
  - Off label use [Unknown]

NARRATIVE: CASE EVENT DATE: 2020
